FAERS Safety Report 5346116-7 (Version None)
Quarter: 2007Q2

REPORT INFORMATION
  Report Type: 
  Country: None (occurrence: None)
  Receive Date: 20070427
  Receipt Date: 20070412
  Transmission Date: 20071010
  Serious: Yes (Hospitalization)
  Sender: FDA-Public Use
  Company Number: 2007-US-000187

PATIENT
  Age: 3 Year
  Sex: Female

DRUGS (2)
  1. INCRELEX [Suspect]
     Indication: GROWTH HORMONE DEFICIENCY
     Dosage: 14 UT, QD, SUBCUTANEOUS
     Route: 058
     Dates: start: 20061001, end: 20070206
  2. PERIACTIN [Concomitant]

REACTIONS (3)
  - DYSPNOEA [None]
  - EOSINOPHILIC OESOPHAGITIS [None]
  - TONSILLAR HYPERTROPHY [None]
